FAERS Safety Report 7597854-7 (Version None)
Quarter: 2011Q3

REPORT INFORMATION
  Report Type: 
  Country: None (occurrence: None)
  Receive Date: 20110708
  Receipt Date: 20110701
  Transmission Date: 20111222
  Serious: Yes (Hospitalization)
  Sender: FDA-Public Use
  Company Number: US-MERCK-1106USA00939

PATIENT
  Sex: Female

DRUGS (1)
  1. MAXALT-MLT [Suspect]
     Indication: MIGRAINE
     Route: 060
     Dates: start: 20100101, end: 20100101

REACTIONS (5)
  - DYSPNOEA [None]
  - MALAISE [None]
  - FLUSHING [None]
  - TONGUE DISORDER [None]
  - TONGUE DRY [None]
